FAERS Safety Report 14479907 (Version 2)
Quarter: 2018Q1

REPORT INFORMATION
  Report Type: Report from Study
  Country: CN (occurrence: CN)
  Receive Date: 20180202
  Receipt Date: 20180215
  Transmission Date: 20180509
  Serious: Yes (Hospitalization)
  Sender: FDA-Public Use
  Company Number: CN-EISAI MEDICAL RESEARCH-EC-2018-035505

PATIENT
  Age: 60 Year
  Sex: Female
  Weight: 54 kg

DRUGS (5)
  1. ACERTIL [Concomitant]
     Active Substance: PERINDOPRIL ARGININE
  2. INDOPAMINE [Concomitant]
  3. ADALAT [Concomitant]
     Active Substance: NIFEDIPINE
  4. LENVATINIB [Suspect]
     Active Substance: LENVATINIB
     Route: 048
     Dates: start: 20171102
  5. LENVATINIB [Suspect]
     Active Substance: LENVATINIB
     Indication: THYROID CANCER
     Route: 048
     Dates: start: 20170919, end: 20171030

REACTIONS (1)
  - Gastrointestinal haemorrhage [Recovered/Resolved]

NARRATIVE: CASE EVENT DATE: 20180123
